FAERS Safety Report 23262859 (Version 1)
Quarter: 2023Q4

REPORT INFORMATION
  Report Type: Spontaneous
  Country: US (occurrence: None)
  Receive Date: 20231204
  Receipt Date: 20231204
  Transmission Date: 20240110
  Serious: Yes (Other)
  Sender: FDA-Public Use
  Company Number: None

PATIENT
  Age: 35 Year
  Sex: Female
  Weight: 81.9 kg

DRUGS (7)
  1. DUPIXENT [Suspect]
     Active Substance: DUPILUMAB
     Indication: Asthma
  2. NUCALA [Concomitant]
     Active Substance: MEPOLIZUMAB
  3. ENBREL [Concomitant]
     Active Substance: ETANERCEPT
  4. ESCITALOPRAM [Concomitant]
     Active Substance: ESCITALOPRAM OXALATE
  5. BUPROPION [Concomitant]
     Active Substance: BUPROPION
  6. MONTELUKAST SODIUM [Concomitant]
     Active Substance: MONTELUKAST SODIUM
  7. Meloxiam [Concomitant]

REACTIONS (6)
  - Arthralgia [None]
  - Therapy cessation [None]
  - Psoriatic arthropathy [None]
  - Rheumatoid arthritis [None]
  - Synovitis [None]
  - Tenosynovitis [None]
